FAERS Safety Report 23009135 (Version 2)
Quarter: 2023Q4

REPORT INFORMATION
  Report Type: Report from Study
  Country: DE (occurrence: None)
  Receive Date: 20230929
  Receipt Date: 20231003
  Transmission Date: 20240110
  Serious: Yes (Hospitalization)
  Sender: FDA-Public Use
  Company Number: DE-Eisai Medical Research-EC-2023-149550

PATIENT
  Age: 71 Year
  Sex: Male
  Weight: 89.1 kg

DRUGS (17)
  1. LENVATINIB [Suspect]
     Active Substance: LENVATINIB
     Indication: Renal cell carcinoma
     Dosage: STARTING DOSE AT 20 MG, QD, FLUCTUATED
     Route: 048
     Dates: start: 20221122, end: 20230731
  2. LENVATINIB [Suspect]
     Active Substance: LENVATINIB
     Dosage: STARTING DOSE AT 14 MG, QD, FLUCTUATED DOSES (DOSE DECREASED)
     Route: 048
     Dates: start: 20230801
  3. BELZUTIFAN [Suspect]
     Active Substance: BELZUTIFAN
     Indication: Renal cell carcinoma
     Route: 048
     Dates: start: 20221122, end: 20230731
  4. BELZUTIFAN [Suspect]
     Active Substance: BELZUTIFAN
     Dosage: STARTING DOSE AT 120 QD, FLUCTUATED DOSES, (DOSE DECREASED)
     Route: 048
     Dates: start: 20230801
  5. ASPIRIN [Concomitant]
     Active Substance: ASPIRIN
     Dates: start: 201304
  6. RAMIPRIL [Concomitant]
     Active Substance: RAMIPRIL
     Dates: start: 201304
  7. NEBIVOLOL [Concomitant]
     Active Substance: NEBIVOLOL
     Dates: start: 201304
  8. METFORMIN [Concomitant]
     Active Substance: METFORMIN HYDROCHLORIDE
     Dates: start: 201101, end: 20230911
  9. ATORVASTATIN [Concomitant]
     Active Substance: ATORVASTATIN
     Dates: start: 201304
  10. SODIUM BICARBONATE [Concomitant]
     Active Substance: SODIUM BICARBONATE
     Dates: start: 202001
  11. MAGNESIUM [Concomitant]
     Active Substance: MAGNESIUM
     Dates: start: 201304
  12. METAMIZOLE [Concomitant]
     Active Substance: METAMIZOLE
     Dates: start: 20221101
  13. PANTOPRAZOLE [Concomitant]
     Active Substance: PANTOPRAZOLE
     Dates: start: 20221129
  14. AMLODIPINE [Concomitant]
     Active Substance: AMLODIPINE BESYLATE
     Dates: start: 20221201, end: 20230911
  15. ONDANSETRON [Concomitant]
     Active Substance: ONDANSETRON
     Dates: start: 20221220
  16. METOCLOPRAMIDE HYDROCHLORIDE [Concomitant]
     Active Substance: METOCLOPRAMIDE HYDROCHLORIDE
     Dates: start: 20230104
  17. LEVOTHYROXINE SODIUM [Concomitant]
     Active Substance: LEVOTHYROXINE SODIUM
     Dates: start: 20230320

REACTIONS (1)
  - Diarrhoea [Not Recovered/Not Resolved]

NARRATIVE: CASE EVENT DATE: 20230704
